FAERS Safety Report 17088594 (Version 1)
Quarter: 2019Q4

REPORT INFORMATION
  Report Type: Report from Study
  Country: ZA (occurrence: ZA)
  Receive Date: 20191128
  Receipt Date: 20191128
  Transmission Date: 20200122
  Serious: Yes (Hospitalization, Other)
  Sender: FDA-Public Use
  Company Number: PHHY2016ZA166571

PATIENT
  Age: 40 Year
  Sex: Female

DRUGS (2)
  1. TUVIGIN [Suspect]
     Active Substance: FINGOLIMOD HYDROCHLORIDE
     Indication: RELAPSING-REMITTING MULTIPLE SCLEROSIS
     Dosage: 0.5 MG, QD
     Route: 048
  2. TUVIGIN [Suspect]
     Active Substance: FINGOLIMOD HYDROCHLORIDE
     Indication: MULTIPLE SCLEROSIS
     Dosage: 0.5 MG, QD
     Route: 048
     Dates: start: 20160707

REACTIONS (18)
  - Balance disorder [Unknown]
  - Fatigue [Recovering/Resolving]
  - Incontinence [Recovering/Resolving]
  - Disturbance in attention [Unknown]
  - Urinary incontinence [Unknown]
  - Muscular weakness [Unknown]
  - Psychiatric symptom [Unknown]
  - Feeling abnormal [Unknown]
  - Hypoaesthesia [Unknown]
  - Haemangioma [Unknown]
  - Back disorder [Recovering/Resolving]
  - Visual impairment [Unknown]
  - Asthenia [Unknown]
  - White blood cell count decreased [Recovering/Resolving]
  - Cognitive disorder [Unknown]
  - Multiple sclerosis [Unknown]
  - Lymphocyte count decreased [Recovering/Resolving]
  - Multiple sclerosis relapse [Recovering/Resolving]

NARRATIVE: CASE EVENT DATE: 20161105
